FAERS Safety Report 24538036 (Version 1)
Quarter: 2024Q4

REPORT INFORMATION
  Report Type: Spontaneous
  Country: DE (occurrence: DE)
  Receive Date: 20241023
  Receipt Date: 20241023
  Transmission Date: 20250114
  Serious: Yes (Life-Threatening, Hospitalization, Other)
  Sender: BRISTOL-MYERS SQUIBB COMPANY
  Company Number: DE-BRISTOL-MYERS SQUIBB COMPANY-2024-162446

PATIENT
  Age: 59 Year
  Sex: Male
  Weight: 90 kg

DRUGS (33)
  1. ELIQUIS [Suspect]
     Active Substance: APIXABAN
     Indication: Atrial fibrillation
     Route: 048
     Dates: start: 20230917, end: 20240402
  2. ELIQUIS [Suspect]
     Active Substance: APIXABAN
     Indication: Pulmonary embolism
     Route: 048
     Dates: start: 20240917
  3. ELIQUIS [Suspect]
     Active Substance: APIXABAN
     Route: 048
     Dates: start: 20241011
  4. PANTOPRAZOLE SODIUM [Concomitant]
     Active Substance: PANTOPRAZOLE SODIUM
     Indication: Product used for unknown indication
     Dates: start: 20240918
  5. METFORMIN HYDROCHLORIDE [Concomitant]
     Active Substance: METFORMIN HYDROCHLORIDE
     Indication: Product used for unknown indication
     Dates: start: 20240917
  6. TORSEMIDE [Concomitant]
     Active Substance: TORSEMIDE
     Indication: Product used for unknown indication
     Dates: start: 20240918
  7. SPIRONOLACTONE [Concomitant]
     Active Substance: SPIRONOLACTONE
     Indication: Product used for unknown indication
     Dosage: 12.5-0-0 MG
     Dates: start: 20240918
  8. SPIRONOLACTONE [Concomitant]
     Active Substance: SPIRONOLACTONE
     Dosage: 12.5-0-0 MG
     Dates: start: 20240918
  9. BISOPROLOL FUMARATE [Concomitant]
     Active Substance: BISOPROLOL FUMARATE
     Indication: Product used for unknown indication
     Dates: start: 20240917
  10. OXAZEPAM RATIOPHARM [Concomitant]
     Indication: Product used for unknown indication
     Dosage: ON-DEMAND MEDICATION : IF NECESSARY?PER INTAKE MAXIMUM PER 24 H : 3 TBL
     Dates: start: 20240917
  11. BENZBROMARON AL [Concomitant]
     Indication: Gout
  12. CANDESARTAN CILEXETIL [Concomitant]
     Active Substance: CANDESARTAN CILEXETIL
     Indication: Blood pressure measurement
     Dosage: 8 MG/12, 5 MG 98 TABLETS N3 8 MG 12.5 MG TABLETTEN 1-0-0-0 UNIT
     Dates: start: 20230928
  13. CANDESARTAN CILEXETIL [Concomitant]
     Active Substance: CANDESARTAN CILEXETIL
     Dosage: 8 MG/12, 5 MG 98 TABLETS N3 8 MG 12.5 MG TABLETTEN 1-0-0-0 UNIT
     Dates: start: 20230928
  14. CANDESARTAN CILEXETIL [Concomitant]
     Active Substance: CANDESARTAN CILEXETIL
     Dosage: CANDECOR? COMP. 8 MG/12,5 MQ 98 TABLETS N3
     Dates: start: 20240301
  15. METFORMIN HYDROCHLORIDE [Concomitant]
     Active Substance: METFORMIN HYDROCHLORIDE
     Indication: Diabetes mellitus
  16. SPIRONOLACTONE [Concomitant]
     Active Substance: SPIRONOLACTONE
     Indication: Diuretic therapy
  17. LORAZEPAM NURAXPHARM [Concomitant]
     Indication: Anxiety
     Dosage: LORAZEPAM-NEURAXPHARM 1MG 20 TBL. N2
  18. LORAZEPAM NURAXPHARM [Concomitant]
     Indication: Restlessness
  19. ALLOPURINOL [Concomitant]
     Active Substance: ALLOPURINOL
     Indication: Product used for unknown indication
     Dates: start: 20240207
  20. DICLOFENAC DIETHYLAMINE [Concomitant]
     Active Substance: DICLOFENAC DIETHYLAMINE
     Indication: Product used for unknown indication
     Dates: start: 20240208
  21. ROSUVASTATIN CALCIUM [Concomitant]
     Active Substance: ROSUVASTATIN CALCIUM
     Indication: Product used for unknown indication
     Dates: start: 20240208
  22. METFORMIN HYDROCHLORIDE [Concomitant]
     Active Substance: METFORMIN HYDROCHLORIDE
     Indication: Product used for unknown indication
     Dates: start: 20240408
  23. BUDESONIDE [Concomitant]
     Active Substance: BUDESONIDE
     Indication: Product used for unknown indication
  24. PARACODIN [DIHYDROCODEINE] [Concomitant]
     Indication: Product used for unknown indication
     Dosage: DROPS FOR INGEST 15 G
  25. ENOXAPARIN SODIUM [Concomitant]
     Active Substance: ENOXAPARIN SODIUM
     Indication: Product used for unknown indication
  26. TORSEMIDE [Concomitant]
     Active Substance: TORSEMIDE
     Indication: Product used for unknown indication
     Dates: start: 20240918
  27. TORSEMIDE [Concomitant]
     Active Substance: TORSEMIDE
     Dates: start: 20240320
  28. OXAZEPAM AL [Concomitant]
     Indication: Product used for unknown indication
     Dosage: ON-DEMAND MEDICATION : IF NECESSARY?PER INTAKE MAXIMUM PER 24 H : 3 TBL
     Dates: start: 20240917
  29. SPIRONOLACTONE [Concomitant]
     Active Substance: SPIRONOLACTONE
     Indication: Diuretic therapy
     Dates: start: 20240320
  30. PANTOPRAZOLE [Concomitant]
     Active Substance: PANTOPRAZOLE
     Indication: Product used for unknown indication
     Dates: start: 20240918
  31. TORSEMIDE [Concomitant]
     Active Substance: TORSEMIDE
     Indication: Product used for unknown indication
  32. PANTOPRAZOLE [Concomitant]
     Active Substance: PANTOPRAZOLE
     Indication: Product used for unknown indication
     Route: 042
  33. HYDROCHLOROTHIAZIDE [Concomitant]
     Active Substance: HYDROCHLOROTHIAZIDE
     Indication: Product used for unknown indication

REACTIONS (31)
  - Gastrointestinal haemorrhage [Recovered/Resolved]
  - Hypochromic anaemia [Unknown]
  - Hyponatraemia [Unknown]
  - Atrial fibrillation [Unknown]
  - Tachycardia [Unknown]
  - Cardiac failure [Unknown]
  - Pulmonary embolism [Unknown]
  - Pneumonia [Unknown]
  - Tachyarrhythmia [Unknown]
  - Iron deficiency anaemia [Unknown]
  - Electrolyte imbalance [Unknown]
  - Delirium tremens [Unknown]
  - Chronic obstructive pulmonary disease [Unknown]
  - Tobacco abuse [Unknown]
  - Aortic arteriosclerosis [Unknown]
  - Hepatitis [Unknown]
  - Cardiac hypertrophy [Unknown]
  - Pulmonary hypertension [Unknown]
  - Cardiac disorder [Unknown]
  - Bronchitis [Unknown]
  - Pulmonary tuberculosis [Unknown]
  - Coronary artery disease [Unknown]
  - Skin laceration [Unknown]
  - Upper respiratory tract infection [Unknown]
  - COVID-19 [Unknown]
  - Oedema peripheral [Unknown]
  - Alcohol use disorder [Unknown]
  - Hepatic cirrhosis [Unknown]
  - Cachexia [Unknown]
  - Normochromic anaemia [Unknown]
  - Blood loss anaemia [Unknown]

NARRATIVE: CASE EVENT DATE: 20230901
